FAERS Safety Report 6183458-X (Version None)
Quarter: 2009Q2

REPORT INFORMATION
  Report Type: 
  Country: None (occurrence: None)
  Receive Date: 20090506
  Receipt Date: 20090424
  Transmission Date: 20091009
  Serious: Yes (Death, Other)
  Sender: FDA-Public Use
  Company Number: SPV1-2009-00796

PATIENT
  Age: 30 Year
  Sex: Male

DRUGS (4)
  1. ELAPRASE [Suspect]
     Indication: MUCOPOLYSACCHARIDOSIS II
     Dosage: 1X/WEEK, IV DRIP
     Route: 041
     Dates: start: 20070131
  2. LEVAQUIN [Suspect]
     Indication: PNEUMONIA
     Dates: start: 20090421
  3. PENACILLIN (AMPICILLIN) [Concomitant]
  4. TYLENOL /00020001/ (PARACETAMOL) [Concomitant]

REACTIONS (6)
  - CONVULSION [None]
  - FALL [None]
  - INCORRECT DOSE ADMINISTERED [None]
  - PNEUMONIA [None]
  - RESPIRATORY ARREST [None]
  - UNRESPONSIVE TO STIMULI [None]
